FAERS Safety Report 7722721-5 (Version None)
Quarter: 2011Q3

REPORT INFORMATION
  Report Type: 
  Country: None (occurrence: None)
  Receive Date: 20110831
  Receipt Date: 20110822
  Transmission Date: 20111222
  Serious: Yes (Other)
  Sender: FDA-Public Use
  Company Number: US-ASTRAZENECA-2010SE21998

PATIENT
  Age: 86 Year
  Sex: Male

DRUGS (7)
  1. LASIX [Concomitant]
  2. ASPIRIN [Concomitant]
     Dosage: LOW DOSE
  3. NEXIUM [Suspect]
     Route: 048
  4. ZESTRIL [Suspect]
     Route: 048
  5. COREG [Concomitant]
  6. ZOCOR [Concomitant]
  7. INSULIN [Concomitant]

REACTIONS (5)
  - DRUG HYPERSENSITIVITY [None]
  - DRUG DOSE OMISSION [None]
  - CARDIAC FAILURE CONGESTIVE [None]
  - COUGH [None]
  - WRONG DRUG ADMINISTERED [None]
